FAERS Safety Report 25942130 (Version 2)
Quarter: 2025Q4

REPORT INFORMATION
  Report Type: Spontaneous
  Country: US (occurrence: US)
  Receive Date: 20251020
  Receipt Date: 20251112
  Transmission Date: 20260117
  Serious: No
  Sender: AMGEN
  Company Number: US-AMGEN-USASP2025203606

PATIENT
  Age: 44 Year
  Sex: Female

DRUGS (4)
  1. REPATHA [Suspect]
     Active Substance: EVOLOCUMAB
     Indication: Diabetes mellitus
     Dosage: 140 MILLIGRAM, Q2WK
     Route: 058
     Dates: start: 20250918
  2. REPATHA [Suspect]
     Active Substance: EVOLOCUMAB
     Indication: Blood cholesterol abnormal
  3. MOUNJARO [Concomitant]
     Active Substance: TIRZEPATIDE
     Indication: Diabetes mellitus
     Route: 065
  4. INSULIN NOS [Concomitant]
     Active Substance: INSULIN NOS
     Indication: Diabetes mellitus
     Route: 065

REACTIONS (3)
  - Device difficult to use [Unknown]
  - Incorrect dose administered by device [Unknown]
  - Accidental exposure to product [Unknown]

NARRATIVE: CASE EVENT DATE: 20251004
